FAERS Safety Report 20645408 (Version 1)
Quarter: 2022Q1

REPORT INFORMATION
  Report Type: Spontaneous
  Country: PL (occurrence: None)
  Receive Date: 20220328
  Receipt Date: 20220328
  Transmission Date: 20220423
  Serious: Yes (Other)
  Sender: FDA-Public Use
  Company Number: PL-AMGEN-POLSP2022043519

PATIENT
  Age: 61 Year
  Sex: Female

DRUGS (4)
  1. OXALIPLATIN [Suspect]
     Active Substance: OXALIPLATIN
     Indication: Rectal cancer metastatic
     Dosage: UNK UNK, CYCLICAL
     Route: 065
     Dates: start: 20190627
  2. LEUCOVORIN [Suspect]
     Active Substance: LEUCOVORIN
     Indication: Rectal cancer metastatic
     Dosage: UNK UNK, CYCLICAL
     Route: 065
     Dates: start: 20190627
  3. FLUOROURACIL [Suspect]
     Active Substance: FLUOROURACIL
     Indication: Rectal cancer metastatic
     Dosage: UNK UNK, CYCLICAL?5-FU [FLUOROURACIL]
     Route: 065
     Dates: start: 20190627
  4. PANITUMUMAB [Suspect]
     Active Substance: PANITUMUMAB
     Indication: Rectal cancer metastatic
     Dosage: UNK UNK, CYCLICAL
     Dates: start: 20190627

REACTIONS (7)
  - Hypomagnesaemia [Unknown]
  - Rectal cancer metastatic [Unknown]
  - Off label use [Unknown]
  - Hypoglycaemia [Unknown]
  - Hyperglycaemia [Unknown]
  - Exfoliative rash [Unknown]
  - Leukopenia [Unknown]

NARRATIVE: CASE EVENT DATE: 20190101
